FAERS Safety Report 7516860-1 (Version None)
Quarter: 2011Q2

REPORT INFORMATION
  Report Type: 
  Country: None (occurrence: None)
  Receive Date: 20110526
  Receipt Date: 20110526
  Transmission Date: 20111010
  Serious: Yes (Hospitalization)
  Sender: FDA-Public Use
  Company Number: None

PATIENT
  Age: 57 Year
  Sex: Male
  Weight: 136.0791 kg

DRUGS (2)
  1. JANUVIA [Suspect]
     Indication: TYPE 2 DIABETES MELLITUS
     Dosage: 100MG QD PO
     Route: 048
     Dates: start: 20101115, end: 20110417
  2. JANUVIA [Suspect]
     Indication: DIABETES MELLITUS MANAGEMENT
     Dosage: 100MG QD PO
     Route: 048
     Dates: start: 20101115, end: 20110417

REACTIONS (5)
  - STAPHYLOCOCCAL INFECTION [None]
  - SKIN DISORDER [None]
  - HAIR DISORDER [None]
  - SKIN OEDEMA [None]
  - SKIN FRAGILITY [None]
